FAERS Safety Report 22287558 (Version 5)
Quarter: 2023Q2

REPORT INFORMATION
  Report Type: Spontaneous
  Country: CA (occurrence: CA)
  Receive Date: 20230505
  Receipt Date: 20230622
  Transmission Date: 20230721
  Serious: Yes (Hospitalization, Other)
  Sender: FDA-Public Use
  Company Number: CA-CELLTRION INC.-2023CA009336

PATIENT

DRUGS (10)
  1. INFLECTRA [Suspect]
     Active Substance: INFLIXIMAB-DYYB
     Indication: Colitis ulcerative
     Dosage: 10 MG/KG, (800MG) 2ND AND 3ND INFUSION
     Route: 042
     Dates: start: 20230318, end: 20230327
  2. INFLECTRA [Suspect]
     Active Substance: INFLIXIMAB-DYYB
     Dosage: 5MG/KG (400 MG) INDUCTION PHASE (0, 2, 6 WEEKS)
     Route: 042
     Dates: start: 20230414, end: 20230414
  3. INFLECTRA [Suspect]
     Active Substance: INFLIXIMAB-DYYB
     Dosage: 10 MG/KG, (800MG) 2ND AND 3ND INFUSION
     Route: 042
     Dates: start: 20230418, end: 20230427
  4. INFLECTRA [Suspect]
     Active Substance: INFLIXIMAB-DYYB
     Dosage: 10 MG/KG, (800MG) 2ND AND 3ND INFUSION
     Route: 042
     Dates: start: 20230427
  5. GRAVOL [Concomitant]
     Active Substance: DIMENHYDRINATE
     Dosage: 100 MG
     Dates: start: 202304
  6. GRAVOL [Concomitant]
     Active Substance: DIMENHYDRINATE
     Dosage: 100 MG, Q6H, PO, PRN
     Route: 048
  7. MONOFERRIC [Concomitant]
     Active Substance: FERRIC DERISOMALTOSE
     Dosage: UNK
     Dates: start: 20230426
  8. ONDANSETRON [Concomitant]
     Active Substance: ONDANSETRON
     Dosage: 8 MG, PO, EVERY 8 HOURS, PRN
     Route: 048
  9. PREDNISONE [Concomitant]
     Active Substance: PREDNISONE
     Dosage: 40 MG,  PO DAILY
     Route: 048
  10. PREDNISONE [Concomitant]
     Active Substance: PREDNISONE
     Dosage: TAPER WITH DECREASED 5 MG/KG STARTING ON DAY 14
     Dates: start: 20230420

REACTIONS (3)
  - Condition aggravated [Not Recovered/Not Resolved]
  - Haemoglobin decreased [Unknown]
  - Off label use [Unknown]

NARRATIVE: CASE EVENT DATE: 20230401
